FAERS Safety Report 23229565 (Version 1)
Quarter: 2023Q4

REPORT INFORMATION
  Report Type: Spontaneous
  Country: US (occurrence: US)
  Receive Date: 20231127
  Receipt Date: 20231127
  Transmission Date: 20240110
  Serious: Yes (Other)
  Sender: FDA-Public Use
  Company Number: US-PADAGIS-2023PAD01664

PATIENT

DRUGS (9)
  1. MOMETASONE FUROATE [Suspect]
     Active Substance: MOMETASONE FUROATE
     Indication: Cutaneous lupus erythematosus
     Dosage: UNK
     Route: 061
  2. CLOBETASOL PROPIONATE [Suspect]
     Active Substance: CLOBETASOL PROPIONATE
     Indication: Chronic cutaneous lupus erythematosus
     Dosage: UNK
     Route: 061
  3. CLOBETASOL PROPIONATE [Suspect]
     Active Substance: CLOBETASOL PROPIONATE
     Indication: Subacute cutaneous lupus erythematosus
  4. TACROLIMUS [Suspect]
     Active Substance: TACROLIMUS
     Indication: Cutaneous lupus erythematosus
     Dosage: UNK
     Route: 061
  5. HYDROXYCHLOROQUINE [Suspect]
     Active Substance: HYDROXYCHLOROQUINE
     Indication: Cutaneous lupus erythematosus
     Dosage: 200 MG, QD
     Route: 065
  6. HYDROXYCHLOROQUINE [Suspect]
     Active Substance: HYDROXYCHLOROQUINE
     Indication: Subacute cutaneous lupus erythematosus
     Dosage: 300 MG, QD (DOSAGE OF 5 MG/KG PER DAY)
     Route: 065
  7. HYDROXYCHLOROQUINE [Suspect]
     Active Substance: HYDROXYCHLOROQUINE
     Indication: Chronic cutaneous lupus erythematosus
  8. TRIAMCINOLONE [Suspect]
     Active Substance: TRIAMCINOLONE
     Indication: Chronic cutaneous lupus erythematosus
     Dosage: 5 MG/ML
     Route: 026
  9. TRIAMCINOLONE [Suspect]
     Active Substance: TRIAMCINOLONE
     Indication: Subacute cutaneous lupus erythematosus

REACTIONS (2)
  - Therapy partial responder [Unknown]
  - Drug ineffective [Unknown]
